FAERS Safety Report 4898790-7 (Version None)
Quarter: 2006Q1

REPORT INFORMATION
  Report Type: 
  Country: None (occurrence: None)
  Receive Date: 20060127
  Receipt Date: 20060120
  Transmission Date: 20060701
  Serious: Yes (Other)
  Sender: FDA-Public Use
  Company Number: 2006009984

PATIENT
  Age: 53 Year
  Sex: Female

DRUGS (1)
  1. NEOSPORIN [Suspect]
     Indication: WOUND TREATMENT
     Dosage: TOPICAL
     Route: 061
     Dates: start: 19960101

REACTIONS (4)
  - DISEASE PROGRESSION [None]
  - DRUG HYPERSENSITIVITY [None]
  - SKIN GRAFT [None]
  - SKIN ULCER [None]
